FAERS Safety Report 9909616 (Version 1)
Quarter: 2014Q1

REPORT INFORMATION
  Report Type: Spontaneous
  Country: US (occurrence: US)
  Receive Date: 20140219
  Receipt Date: 20140219
  Transmission Date: 20141002
  Serious: Yes (Hospitalization)
  Sender: FDA-Public Use
  Company Number: US-GLAXOSMITHKLINE-A1060477A

PATIENT
  Age: 63 Year
  Sex: Female

DRUGS (13)
  1. IMITREX [Suspect]
     Indication: MIGRAINE
     Dosage: 1SPR PER DAY
     Route: 045
  2. XANAX [Suspect]
     Indication: PRODUCT USED FOR UNKNOWN INDICATION
     Route: 065
  3. SUMATRIPTAN [Suspect]
     Indication: MIGRAINE
     Route: 048
  4. ANTIDEPRESSANT [Suspect]
     Route: 065
  5. LASIX [Concomitant]
  6. POTASSIUM [Concomitant]
  7. AMILORIDE [Concomitant]
  8. WELLBUTRIN [Concomitant]
  9. NABUMETONE [Concomitant]
  10. GABAPENTIN [Concomitant]
  11. VICODIN [Concomitant]
  12. SIMVASTATIN [Concomitant]
  13. HYDROXYZINE [Concomitant]

REACTIONS (7)
  - Panic attack [Recovered/Resolved]
  - Back pain [Not Recovered/Not Resolved]
  - Drug ineffective [Recovered/Resolved]
  - Drug interaction [Unknown]
  - Neck pain [Not Recovered/Not Resolved]
  - Hypoaesthesia [Not Recovered/Not Resolved]
  - Pain in extremity [Not Recovered/Not Resolved]
